FAERS Safety Report 7372302-0 (Version None)
Quarter: 2011Q1

REPORT INFORMATION
  Report Type: 
  Country: None (occurrence: None)
  Receive Date: 20110324
  Receipt Date: 20110321
  Transmission Date: 20110831
  Serious: Yes (Other)
  Sender: FDA-Public Use
  Company Number: B0603396A

PATIENT

DRUGS (2)
  1. REYATAZ [Suspect]
     Route: 064
  2. KIVEXA [Suspect]
     Route: 064

REACTIONS (3)
  - CLEFT PALATE [None]
  - LIMB MALFORMATION [None]
  - DRUG EXPOSURE DURING PREGNANCY [None]
